FAERS Safety Report 4774820-8 (Version None)
Quarter: 2005Q3

REPORT INFORMATION
  Report Type: 
  Country: None (occurrence: None)
  Receive Date: 20050921
  Receipt Date: 20050727
  Transmission Date: 20060218
  Serious: Yes (Hospitalization)
  Sender: FDA-Public Use
  Company Number: JP-NOVOPROD-245873

PATIENT
  Age: 13 Year
  Sex: Male
  Weight: 27 kg

DRUGS (1)
  1. NORDITROPIN [Suspect]
     Indication: GROWTH HORMONE DEFICIENCY
     Dosage: UNK IU, QD
     Route: 058
     Dates: start: 20001001, end: 20050101

REACTIONS (4)
  - BLOOD LACTATE DEHYDROGENASE INCREASED [None]
  - DIFFUSE LARGE B-CELL LYMPHOMA [None]
  - IRON DEFICIENCY ANAEMIA [None]
  - SERUM FERRITIN DECREASED [None]
